FAERS Safety Report 9013116 (Version 1)
Quarter: 2013Q1

REPORT INFORMATION
  Report Type: Spontaneous
  Country: US (occurrence: US)
  Receive Date: 20130115
  Receipt Date: 20130115
  Transmission Date: 20140127
  Serious: Yes (Hospitalization)
  Sender: FDA-Public Use
  Company Number: US-BIOGENIDEC-2013BI002213

PATIENT
  Age: 0 Year
  Sex: Female

DRUGS (1)
  1. TYSABRI [Suspect]
     Indication: MATERNAL EXPOSURE TIMING UNSPECIFIED
     Route: 064
     Dates: start: 20090825, end: 20120123

REACTIONS (2)
  - Foetal heart rate increased [Unknown]
  - Foetal heart rate deceleration [Unknown]
